FAERS Safety Report 25958034 (Version 1)
Quarter: 2025Q4

REPORT INFORMATION
  Report Type: Spontaneous
  Country: US (occurrence: US)
  Receive Date: 20251024
  Receipt Date: 20251024
  Transmission Date: 20260118
  Serious: No
  Sender: ELI LILLY AND COMPANY
  Company Number: US-ELI_LILLY_AND_COMPANY-US202510025645

PATIENT
  Age: 54 Year
  Sex: Female

DRUGS (3)
  1. TRULICITY [Suspect]
     Active Substance: DULAGLUTIDE
     Indication: Product used for unknown indication
     Dosage: 0.75 MG, UNKNOWN
     Route: 065
  2. TRULICITY [Suspect]
     Active Substance: DULAGLUTIDE
     Indication: Diabetes mellitus
     Dosage: 1.5 MG, UNKNOWN
     Route: 058
  3. PRIMIDONE [Concomitant]
     Active Substance: PRIMIDONE
     Indication: Nausea

REACTIONS (7)
  - Weight increased [Unknown]
  - Appetite disorder [Unknown]
  - Injection site bruising [Unknown]
  - Visual impairment [Unknown]
  - Product dose omission issue [Unknown]
  - Nausea [Unknown]
  - Drug ineffective [Unknown]
